FAERS Safety Report 7353073-0 (Version None)
Quarter: 2011Q1

REPORT INFORMATION
  Report Type: 
  Country: None (occurrence: None)
  Receive Date: 20110315
  Receipt Date: 20110310
  Transmission Date: 20110831
  Serious: Yes (Hospitalization)
  Sender: FDA-Public Use
  Company Number: B0705296A

PATIENT
  Sex: Male

DRUGS (15)
  1. DEBRIDAT [Concomitant]
     Route: 048
     Dates: start: 20091215, end: 20091222
  2. XATRAL [Concomitant]
     Indication: PROSTATIC ADENOMA
     Route: 048
  3. PROFENID [Concomitant]
     Route: 065
  4. ZOLPIDEM [Concomitant]
     Indication: SLEEP DISORDER
     Route: 065
  5. POLERY [Concomitant]
     Route: 065
  6. PRAVASTATIN [Concomitant]
     Route: 048
  7. OMEPRAZOLE [Concomitant]
     Route: 048
  8. ALLOPURINOL [Concomitant]
     Route: 048
     Dates: end: 20091222
  9. SPASFON [Concomitant]
     Dosage: 2TAB THREE TIMES PER DAY
     Route: 065
     Dates: start: 20091130
  10. AUGMENTIN [Suspect]
     Dosage: 1G THREE TIMES PER DAY
     Route: 048
     Dates: start: 20091130, end: 20091222
  11. OFLOCET [Suspect]
     Dosage: 200UG TWICE PER DAY
     Route: 048
     Dates: start: 20091215, end: 20091222
  12. HYTACAND [Concomitant]
     Route: 048
     Dates: end: 20091222
  13. PULMICORT [Concomitant]
     Route: 065
  14. ARTOTEC [Concomitant]
     Route: 065
  15. ACETAMINOPHEN [Concomitant]
     Dosage: 1G THREE TIMES PER DAY
     Route: 065
     Dates: start: 20091130

REACTIONS (5)
  - HEPATIC ENZYME INCREASED [None]
  - CHROMATURIA [None]
  - MIXED LIVER INJURY [None]
  - ABDOMINAL PAIN [None]
  - JAUNDICE [None]
